FAERS Safety Report 7826211-0 (Version None)
Quarter: 2011Q4

REPORT INFORMATION
  Report Type: 
  Country: None (occurrence: None)
  Receive Date: 20111020
  Receipt Date: 20111013
  Transmission Date: 20120403
  Serious: Yes (Death, Hospitalization)
  Sender: FDA-Public Use
  Company Number: US-BIOGENIDEC-2011BI029554

PATIENT
  Age: 64 Year
  Sex: Female

DRUGS (2)
  1. AVONEX [Suspect]
     Indication: MULTIPLE SCLEROSIS
     Route: 030
     Dates: end: 20110101
  2. AVONEX [Suspect]
     Dates: start: 20001101

REACTIONS (4)
  - CYSTITIS [None]
  - GENITAL ABSCESS [None]
  - URINARY INCONTINENCE [None]
  - RENAL FAILURE [None]
